FAERS Safety Report 9882568 (Version 1)
Quarter: 2014Q1

REPORT INFORMATION
  Report Type: Spontaneous
  Country: FR (occurrence: FR)
  Receive Date: 20140207
  Receipt Date: 20140207
  Transmission Date: 20141002
  Serious: Yes (Other)
  Sender: FDA-Public Use
  Company Number: FR-ASTRAZENECA-2014SE07626

PATIENT
  Age: 43 Year
  Sex: Female
  Weight: 69 kg

DRUGS (5)
  1. MOPRAL [Suspect]
     Indication: GASTROOESOPHAGEAL REFLUX DISEASE
     Route: 048
     Dates: start: 2003, end: 201311
  2. SERETIDE [Concomitant]
     Dates: start: 200512
  3. XYZALL [Concomitant]
     Dates: start: 201205
  4. SINGULAIR [Concomitant]
     Dates: start: 200609
  5. VENTOLINE [Concomitant]

REACTIONS (6)
  - Hypoparathyroidism secondary [Recovered/Resolved]
  - Joint swelling [Recovered/Resolved]
  - Hypocalcaemia [Recovered/Resolved]
  - Arthralgia [Recovered/Resolved]
  - Paraesthesia [Recovered/Resolved]
  - Hypomagnesaemia [Recovered/Resolved]
